FAERS Safety Report 7428636-4 (Version None)
Quarter: 2011Q2

REPORT INFORMATION
  Report Type: 
  Country: None (occurrence: None)
  Receive Date: 20110413
  Receipt Date: 20110330
  Transmission Date: 20111010
  Serious: Yes (Other)
  Sender: FDA-Public Use
  Company Number: JPI-P-014384

PATIENT
  Age: 26 Year
  Sex: Male

DRUGS (1)
  1. XYREM [Suspect]
     Indication: NARCOLEPSY
     Dosage: ORAL ; 7 GM (3.5 GM,2 IN 1 D),ORAL
     Route: 048
     Dates: start: 20100701

REACTIONS (1)
  - SHOULDER OPERATION [None]
